FAERS Safety Report 5502083-4 (Version None)
Quarter: 2007Q4

REPORT INFORMATION
  Report Type: 
  Country: None (occurrence: None)
  Receive Date: 20071019
  Receipt Date: 20070131
  Transmission Date: 20080405
  Serious: Yes (Hospitalization)
  Sender: FDA-Public Use
  Company Number: PHEH2006US04214

PATIENT
  Age: 82 Year
  Sex: Male

DRUGS (14)
  1. ZOMETA [Suspect]
     Indication: METASTASES TO BONE
     Dosage: 4 MG Q4WK, INFUSION
     Dates: start: 20060315
  2. ZOMETA [Suspect]
     Indication: METASTASES TO BONE
     Dosage: 4 MG Q4WK, INFUSION
     Dates: start: 20060510
  3. PROCRIT [Concomitant]
  4. MULTIVITAMINS AND IRO (NO INGREDIENTS/SUBSTANCES) [Concomitant]
  5. RIAMTERENE AND HYDROCHLOROTHIAZIDE (HYDROCHLOROTHIAZIDE, TRIAMTERNE) [Concomitant]
  6. TOPROX XL (METOPROLOL SUCCINATE) [Concomitant]
  7. TRELSTAR - SLOW RELEASE (TRIPTORELIN EMBONATE) [Concomitant]
  8. CITRUCEL (METHYLCELLULOSE) [Concomitant]
  9. CASODEX [Concomitant]
  10. FLOMAX [Concomitant]
  11. MIRALAX [Concomitant]
  12. OXYCONTIN [Concomitant]
  13. PERCOCET [Concomitant]
  14. PROZAC [Concomitant]

REACTIONS (8)
  - ABDOMINAL DISCOMFORT [None]
  - BLOOD CREATININE INCREASED [None]
  - BLOOD UREA INCREASED [None]
  - DIARRHOEA [None]
  - DYSPNOEA [None]
  - HAEMATEMESIS [None]
  - PYREXIA [None]
  - VOMITING [None]
